FAERS Safety Report 9849922 (Version 1)
Quarter: 2014Q1

REPORT INFORMATION
  Report Type: Spontaneous
  Country: US (occurrence: None)
  Receive Date: 20140124
  Receipt Date: 20140124
  Transmission Date: 20141002
  Serious: Yes (Death)
  Sender: FDA-Public Use
  Company Number: 2014US00031

PATIENT
  Sex: 0

DRUGS (3)
  1. GEMCITABINE (GEMCITABINE) INJECTION [Suspect]
     Indication: NEOPLASM
     Dosage: WEEKLY X THREE TIMES
     Route: 042
  2. ERLOTINIB [Suspect]
     Indication: NEOPLASM
  3. HUMAN IMMUNOGLOBULIN G [Suspect]
     Indication: NEOPLASM
     Dosage: INFUSION

REACTIONS (1)
  - Failure to thrive [None]
